FAERS Safety Report 9401888 (Version 2)
Quarter: 2013Q3

REPORT INFORMATION
  Report Type: Spontaneous
  Country: AU (occurrence: AU)
  Receive Date: 20130716
  Receipt Date: 20130826
  Transmission Date: 20140515
  Serious: Yes (Other)
  Sender: FDA-Public Use
  Company Number: AU-ABBOTT-13X-008-1116544-00

PATIENT
  Sex: Female
  Weight: 72 kg

DRUGS (3)
  1. LIPIDIL [Suspect]
     Indication: BLOOD CHOLESTEROL
     Dates: start: 2013
  2. PANADOL [Concomitant]
     Indication: PRODUCT USED FOR UNKNOWN INDICATION
  3. CALTRATE [Concomitant]
     Indication: PRODUCT USED FOR UNKNOWN INDICATION

REACTIONS (12)
  - Photoelectric conjunctivitis [Unknown]
  - Photosensitivity reaction [Recovering/Resolving]
  - Rash [Unknown]
  - Pruritus [Unknown]
  - Unevaluable event [Unknown]
  - Rash pruritic [Unknown]
  - Discomfort [Unknown]
  - Activities of daily living impaired [Unknown]
  - Pterygium [Unknown]
  - Erythema [Unknown]
  - Infection [Unknown]
  - Rash erythematous [Unknown]
